FAERS Safety Report 9664884 (Version 3)
Quarter: 2014Q1

REPORT INFORMATION
  Report Type: Report from Study
  Country: JP (occurrence: JP)
  Receive Date: 20131101
  Receipt Date: 20140226
  Transmission Date: 20141002
  Serious: Yes (Other)
  Sender: FDA-Public Use
  Company Number: JP-VERTEX PHARMACEUTICALS INC-AE-2012-010166

PATIENT
  Age: 66 Year
  Sex: Male

DRUGS (21)
  1. VX-950 (TELAPREVIR) [Suspect]
     Indication: CHRONIC HEPATITIS C
     Dosage: 2250 MG, QD
     Route: 048
     Dates: start: 20120613, end: 20120703
  2. VX-950 (TELAPREVIR) [Suspect]
     Dosage: 1500 MG, QD
     Route: 048
     Dates: start: 20120704, end: 20120723
  3. PEGINTRON [Suspect]
     Indication: CHRONIC HEPATITIS C
     Dosage: 1.5 ?G/KG, QW
     Route: 058
     Dates: start: 20120613, end: 20120717
  4. REBETOL [Suspect]
     Indication: CHRONIC HEPATITIS C
     Dosage: 1000 MG, QD
     Route: 048
     Dates: start: 20120613, end: 20120710
  5. REBETOL [Suspect]
     Dosage: 400 MG, QD
     Route: 048
     Dates: start: 20120711, end: 20120717
  6. PROHEPARUM [Concomitant]
     Dosage: 200 MG, QD
     Route: 048
  7. DIOVAN [Concomitant]
     Dosage: 80 MG, QD
     Route: 048
  8. ALDACTONE A [Concomitant]
     Dosage: 25 MG, QD
     Route: 048
  9. JANUVIA [Concomitant]
     Dosage: 50 MG, QD
     Route: 048
  10. NAIXAN [Concomitant]
     Dosage: 200 MG, QD
     Route: 048
     Dates: start: 20120612, end: 20120630
  11. MUCOSTA [Concomitant]
     Dosage: 200 MG, QD
     Route: 048
     Dates: start: 20120612, end: 20120630
  12. VOLTAREN [Concomitant]
     Dosage: 50 MG, QD
     Route: 054
     Dates: start: 20120612, end: 201206
  13. NAUZELIN [Concomitant]
     Dosage: 10 MG, QD
     Route: 048
     Dates: start: 20120615, end: 20120622
  14. LOXONIN [Concomitant]
     Dosage: 180 MG, QD
     Route: 048
     Dates: start: 20120615
  15. LENDORMIN DAINIPPO [Concomitant]
     Dosage: 0.25 MG, QD
     Route: 048
     Dates: start: 20120621
  16. EURODIN [Concomitant]
     Dosage: 2 MG, QD
     Route: 048
     Dates: start: 20120624
  17. URSO [Concomitant]
     Dosage: 300 MG, QD
     Route: 048
     Dates: start: 20120625
  18. DOGMATYL [Concomitant]
     Dosage: 50 MG, QD
     Route: 048
     Dates: start: 20120625
  19. TAKEPRON [Concomitant]
     Dosage: 15 MG, QD
     Route: 048
     Dates: start: 20120626
  20. ACTOS [Concomitant]
     Dosage: 15 MG, QD
     Route: 048
     Dates: start: 20120626
  21. DEPAS [Concomitant]
     Dosage: 0.5 MG, QD
     Route: 048
     Dates: start: 20120627

REACTIONS (5)
  - Blood urea increased [Recovering/Resolving]
  - Malaise [Not Recovered/Not Resolved]
  - Decreased appetite [Not Recovered/Not Resolved]
  - Blood creatinine increased [Not Recovered/Not Resolved]
  - Haemoglobin decreased [Unknown]
